FAERS Safety Report 12683700 (Version 1)
Quarter: 2016Q3

REPORT INFORMATION
  Report Type: Spontaneous
  Country: CH (occurrence: CH)
  Receive Date: 20160825
  Receipt Date: 20160825
  Transmission Date: 20161109
  Serious: Yes (Hospitalization)
  Sender: FDA-Public Use
  Company Number: CH-JNJFOC-20160813055

PATIENT
  Age: 43 Year
  Sex: Male

DRUGS (29)
  1. PROGRAF [Suspect]
     Active Substance: TACROLIMUS\TACROLIMUS ANHYDROUS
     Indication: PRODUCT USED FOR UNKNOWN INDICATION
     Route: 048
  2. DUPHALAC [Concomitant]
     Active Substance: LACTULOSE
     Route: 048
  3. CO-DAFALGAN [Concomitant]
     Active Substance: ACETAMINOPHEN\CODEINE PHOSPHATE
     Route: 048
  4. PREDNISON GALEPHARM [Suspect]
     Active Substance: PREDNISONE
     Indication: PRODUCT USED FOR UNKNOWN INDICATION
     Route: 048
  5. METOPROLOL SUCCINATE. [Concomitant]
     Active Substance: METOPROLOL SUCCINATE
     Dosage: 1/2 EVERY DAY
     Route: 048
  6. VANCOCIN [Concomitant]
     Active Substance: VANCOMYCIN HYDROCHLORIDE
     Route: 042
  7. BACTRIM [Concomitant]
     Active Substance: SULFAMETHOXAZOLE\TRIMETHOPRIM
     Dosage: 1 DF = 800/160 MG, 800MG, 160MG MON, TUE, FRI
     Route: 065
  8. CIPROXIN [Concomitant]
     Active Substance: CIPROFLOXACIN
     Route: 048
  9. CREON [Concomitant]
     Active Substance: PANCRELIPASE AMYLASE\PANCRELIPASE LIPASE\PANCRELIPASE PROTEASE
     Dosage: THREE TIMES 6 EACH TIME DAILY
     Route: 048
  10. METOLAZON [Concomitant]
     Active Substance: METOLAZONE
     Route: 048
  11. TOREM [Concomitant]
     Active Substance: TORSEMIDE
     Route: 048
  12. TRANSIPEG [Concomitant]
     Active Substance: POLYETHYLENE GLYCOL 3350
     Route: 048
  13. ROCALTROL [Concomitant]
     Active Substance: CALCITRIOL
     Route: 065
  14. MERONEM [Concomitant]
     Active Substance: MEROPENEM
     Route: 042
  15. URSOFALK [Concomitant]
     Active Substance: URSODIOL
     Route: 048
  16. ZANTAC [Concomitant]
     Active Substance: RANITIDINE HYDROCHLORIDE
     Route: 048
  17. CYMBALTA [Suspect]
     Active Substance: DULOXETINE HYDROCHLORIDE
     Indication: PRODUCT USED FOR UNKNOWN INDICATION
     Route: 048
     Dates: start: 20150626
  18. VALTREX [Concomitant]
     Active Substance: VALACYCLOVIR HYDROCHLORIDE
     Route: 048
  19. CALCIUM ACETATE. [Concomitant]
     Active Substance: CALCIUM ACETATE
     Route: 048
  20. VI-DE 3 [Concomitant]
     Active Substance: CHOLECALCIFEROL
     Dosage: 100IU/DROP
     Route: 048
  21. SPORANOX [Suspect]
     Active Substance: ITRACONAZOLE
     Indication: PRODUCT USED FOR UNKNOWN INDICATION
     Route: 048
  22. COLCHICINE OPOCALIUM [Concomitant]
     Active Substance: COLCHICINE
     Route: 048
  23. VENLAFAXIN MEPHA [Concomitant]
     Route: 048
  24. ESOMEPRAZOLE [Concomitant]
     Active Substance: ESOMEPRAZOLE
     Route: 048
  25. SEVELAMER [Concomitant]
     Active Substance: SEVELAMER
     Route: 048
  26. ZITHROMAX [Concomitant]
     Active Substance: AZITHROMYCIN DIHYDRATE
     Route: 048
  27. ZYLORIC [Concomitant]
     Active Substance: ALLOPURINOL
     Route: 048
  28. GASTROGRAFIN [Concomitant]
     Active Substance: DIATRIZOATE MEGLUMINE\DIATRIZOATE SODIUM
     Route: 065
  29. NOVORAPID [Concomitant]
     Active Substance: INSULIN ASPART
     Route: 058

REACTIONS (2)
  - Gastrointestinal haemorrhage [Recovered/Resolved]
  - Anal haemorrhage [Recovered/Resolved]

NARRATIVE: CASE EVENT DATE: 20150626
